FAERS Safety Report 10143543 (Version 1)
Quarter: 2014Q2

REPORT INFORMATION
  Report Type: Spontaneous
  Country: US (occurrence: None)
  Receive Date: 20140429
  Receipt Date: 20140429
  Transmission Date: 20141212
  Serious: Yes (Hospitalization)
  Sender: FDA-Public Use
  Company Number: None

PATIENT
  Age: 51 Year
  Sex: Female
  Weight: 63.5 kg

DRUGS (4)
  1. CARBOPLATIN [Suspect]
     Dates: end: 20120214
  2. PACLITAXEL (TAXOL) [Suspect]
     Dates: end: 20120214
  3. IBUPROFEN [Concomitant]
  4. VICODIN [Concomitant]

REACTIONS (1)
  - Abdominal pain [None]
